FAERS Safety Report 19077825 (Version 1)
Quarter: 2021Q1

REPORT INFORMATION
  Report Type: Spontaneous
  Country: FR (occurrence: FR)
  Receive Date: 20210331
  Receipt Date: 20210331
  Transmission Date: 20210420
  Serious: Yes (Hospitalization)
  Sender: FDA-Public Use
  Company Number: FR-PFIZER INC-2021309263

PATIENT
  Age: 37 Year
  Sex: Male

DRUGS (5)
  1. LYRICA [Suspect]
     Active Substance: PREGABALIN
     Dosage: UNK
     Route: 048
  2. CODEINE [Suspect]
     Active Substance: CODEINE
     Dosage: UNK
     Route: 048
  3. CANNABIS [Suspect]
     Active Substance: CANNABIS SATIVA SUBSP. INDICA TOP
     Dosage: 5 DF, DAILY
     Route: 055
     Dates: start: 1997
  4. COCAINE HYDROCHLORIDE. [Suspect]
     Active Substance: COCAINE HYDROCHLORIDE
     Dosage: 0.5 G, DAILY
     Route: 045
     Dates: start: 2000
  5. LEXOMIL [Suspect]
     Active Substance: BROMAZEPAM
     Dosage: 36 MG, DAILY (6 MG 6 TIMES A DAY)
     Route: 048
     Dates: start: 2013

REACTIONS (3)
  - Intentional product misuse [Recovering/Resolving]
  - Drug withdrawal syndrome [Recovering/Resolving]
  - Drug dependence [Recovering/Resolving]

NARRATIVE: CASE EVENT DATE: 1997
